FAERS Safety Report 4865451-X (Version None)
Quarter: 2005Q4

REPORT INFORMATION
  Report Type: 
  Country: None (occurrence: None)
  Receive Date: 20051220
  Receipt Date: 20051205
  Transmission Date: 20060501
  Serious: Yes (Life-Threatening)
  Sender: FDA-Public Use
  Company Number: B0403156A

PATIENT
  Age: 38 Year
  Sex: Female

DRUGS (3)
  1. EPIVIR [Suspect]
     Indication: HIV INFECTION
  2. RETROVIR [Suspect]
     Indication: HIV INFECTION
     Dosage: 300 MG/TWICE PER DAY
  3. NEVIRAPINE [Suspect]
     Indication: HIV INFECTION
     Dosage: 200 MG/TWICE PER DAY

REACTIONS (7)
  - ANAEMIA MACROCYTIC [None]
  - BONE MARROW FAILURE [None]
  - CAESAREAN SECTION [None]
  - COMPLICATION OF PREGNANCY [None]
  - DRUG EXPOSURE DURING PREGNANCY [None]
  - FOETAL MOVEMENTS DECREASED [None]
  - PREGNANCY [None]
